FAERS Safety Report 7906075-7 (Version None)
Quarter: 2011Q4

REPORT INFORMATION
  Report Type: 
  Country: None (occurrence: None)
  Receive Date: 20111109
  Receipt Date: 20111109
  Transmission Date: 20120403
  Serious: No
  Sender: FDA-Public Use
  Company Number: None

PATIENT
  Sex: Male
  Weight: 81.6475 kg

DRUGS (1)
  1. LOSARTAN POTASSIUM [Suspect]
     Indication: HYPERTENSION
     Dosage: 25 MG 1/PILL DAY
     Dates: start: 20110825

REACTIONS (5)
  - BLOOD PRESSURE INCREASED [None]
  - GAIT DISTURBANCE [None]
  - VISUAL IMPAIRMENT [None]
  - PRODUCT SUBSTITUTION ISSUE [None]
  - PAIN IN EXTREMITY [None]
